FAERS Safety Report 24260955 (Version 2)
Quarter: 2024Q3

REPORT INFORMATION
  Report Type: Spontaneous
  Country: CN (occurrence: CN)
  Receive Date: 20240829
  Receipt Date: 20240904
  Transmission Date: 20241017
  Serious: Yes (Hospitalization, Other)
  Sender: NOVARTIS
  Company Number: CN-002147023-NVSC2024CN173663

PATIENT
  Age: 82 Year
  Sex: Male
  Weight: 60 kg

DRUGS (1)
  1. SACUBITRIL\VALSARTAN [Suspect]
     Active Substance: SACUBITRIL\VALSARTAN
     Indication: Arteriosclerosis coronary artery
     Dosage: 50.000 MG, BID
     Route: 048
     Dates: start: 20220118, end: 20240820

REACTIONS (4)
  - Blood potassium increased [Recovering/Resolving]
  - Hyperkalaemia [Unknown]
  - Chronic kidney disease [Unknown]
  - Off label use [Unknown]

NARRATIVE: CASE EVENT DATE: 20240810
